FAERS Safety Report 5498537-X (Version None)
Quarter: 2007Q4

REPORT INFORMATION
  Report Type: 
  Country: None (occurrence: None)
  Receive Date: 20071026
  Receipt Date: 20071017
  Transmission Date: 20080405
  Serious: Yes (Other)
  Sender: FDA-Public Use
  Company Number: PHBS2007JP17480

PATIENT
  Age: 5 Year
  Sex: Male

DRUGS (1)
  1. ZADITEN [Suspect]
     Route: 048

REACTIONS (1)
  - FEBRILE CONVULSION [None]
